FAERS Safety Report 20828743 (Version 2)
Quarter: 2023Q4

REPORT INFORMATION
  Report Type: Report from Study
  Country: US (occurrence: US)
  Receive Date: 20220513
  Receipt Date: 20231209
  Transmission Date: 20240110
  Serious: No
  Sender: FDA-Public Use
  Company Number: US-SA-SAC20220509001400

PATIENT
  Sex: Male

DRUGS (8)
  1. DUPILUMAB [Suspect]
     Active Substance: DUPILUMAB
     Indication: Dermatitis atopic
     Dosage: 300 MG, QOW
     Route: 058
     Dates: start: 20210101
  2. TRIAMCINOLONE ACETONIDE [Concomitant]
     Active Substance: TRIAMCINOLONE ACETONIDE
  3. TACROLIMUS [Concomitant]
     Active Substance: TACROLIMUS
  4. VALSARTAN [Concomitant]
     Active Substance: VALSARTAN
  5. LORATADINE [Concomitant]
     Active Substance: LORATADINE
  6. ASPIRIN [Concomitant]
     Active Substance: ASPIRIN
  7. FAMOTIDINE [Concomitant]
     Active Substance: FAMOTIDINE
  8. PLAVIX [Concomitant]
     Active Substance: CLOPIDOGREL BISULFATE

REACTIONS (1)
  - Extra dose administered [Unknown]

NARRATIVE: CASE EVENT DATE: 20220101
